FAERS Safety Report 21402859 (Version 1)
Quarter: 2022Q4

REPORT INFORMATION
  Report Type: Spontaneous
  Country: CN (occurrence: None)
  Receive Date: 20221003
  Receipt Date: 20221003
  Transmission Date: 20230113
  Serious: Yes (Other)
  Sender: FDA-Public Use
  Company Number: CN-ROCHE-3187087

PATIENT
  Age: 30 Year
  Sex: Male

DRUGS (5)
  1. OBINUTUZUMAB [Suspect]
     Active Substance: OBINUTUZUMAB
     Indication: Follicular lymphoma
     Dosage: G-CHOP CYCLE 1, DAY 1 TO DAY 2.
     Route: 042
     Dates: start: 202207
  2. CYCLOPHOSPHAMIDE [Concomitant]
     Active Substance: CYCLOPHOSPHAMIDE
     Indication: Follicular lymphoma
     Dosage: G-CHOP CYCLE 1, DAY 1 TO DAY 2.  ?G-CHOP CYCLE 2, DAY 1 TO DAY 2.
  3. DOXORUBICIN [Concomitant]
     Active Substance: DOXORUBICIN
     Indication: Follicular lymphoma
     Dosage: G-CHOP CYCLE 1, DAY 1 TO DAY 2.?G-CHOP CYCLE 2, DAY 1 TO DAY 2.
     Dates: start: 202207
  4. VINCRISTINE [Concomitant]
     Active Substance: VINCRISTINE
     Indication: Follicular lymphoma
     Dosage: G-CHOP CYCLE 1, DAY 1 TO DAY 2.?G-CHOP CYCLE 2, DAY 1 TO DAY 2.
     Dates: start: 202207
  5. PREDNISONE [Concomitant]
     Active Substance: PREDNISONE
     Indication: Follicular lymphoma
     Dosage: G-CHOP CYCLE 1, DAY 1 TO DAY 2.?G-CHOP CYCLE 2, DAY 1 TO DAY 2.
     Dates: start: 202207

REACTIONS (6)
  - Infusion related reaction [Unknown]
  - White blood cell count decreased [Unknown]
  - Neutrophil count decreased [Unknown]
  - Urticaria [Recovered/Resolved]
  - Myelosuppression [Unknown]
  - Upper respiratory tract infection [Unknown]
